FAERS Safety Report 16832078 (Version 1)
Quarter: 2019Q3

REPORT INFORMATION
  Report Type: Spontaneous
  Country: DE (occurrence: DE)
  Receive Date: 20190920
  Receipt Date: 20190920
  Transmission Date: 20191005
  Serious: Yes (Hospitalization, Other)
  Sender: FDA-Public Use
  Company Number: DE-AUROBINDO-AUR-APL-2019-060736

PATIENT
  Age: 65 Year
  Sex: Male
  Weight: 78 kg

DRUGS (10)
  1. CISPLATIN. [Suspect]
     Active Substance: CISPLATIN
     Indication: SQUAMOUS CELL CARCINOMA OF HEAD AND NECK
     Dosage: 75 MILLIGRAM/SQ. METER, EVERY 3 WEEK
     Route: 042
     Dates: start: 20121217, end: 20121217
  2. DELIX (RAMIPRIL) [Suspect]
     Active Substance: RAMIPRIL
     Indication: HYPERTENSION
     Dosage: 2.5 MILLIGRAM, ONCE A DAY
     Route: 065
     Dates: start: 20121128
  3. ERBITUX [Suspect]
     Active Substance: CETUXIMAB
     Indication: SQUAMOUS CELL CARCINOMA OF HEAD AND NECK
     Dosage: 400 MILLIGRAM/SQ. METER, EVERY WEEK
     Route: 042
     Dates: start: 20121217, end: 20121217
  4. ERBITUX [Suspect]
     Active Substance: CETUXIMAB
     Dosage: 250 MILLIGRAM/SQ. METER, EVERY WEEK
     Route: 042
     Dates: start: 20130107, end: 20130107
  5. CISPLATIN. [Suspect]
     Active Substance: CISPLATIN
     Dosage: 75 MILLIGRAM/SQ. METER, EVERY 3 WEEK
     Route: 042
     Dates: start: 20130107, end: 20130107
  6. FLUOROURACIL. [Suspect]
     Active Substance: FLUOROURACIL
     Dosage: 1000 MILLIGRAM/SQ. METER, EVERY 3 WEEK
     Route: 042
     Dates: start: 20130107, end: 20130107
  7. ACETYLSALICYLIC ACID [Concomitant]
     Active Substance: ASPIRIN
     Indication: PROSTATIC DISORDER
     Dosage: UNK
     Route: 065
     Dates: start: 20131128
  8. TAMSULOSIN [Suspect]
     Active Substance: TAMSULOSIN
     Indication: PROSTATIC DISORDER
     Dosage: 0.4 MILLIGRAM
     Route: 065
     Dates: start: 20121128
  9. ERBITUX [Suspect]
     Active Substance: CETUXIMAB
     Dosage: 250 MILLIGRAM/SQ. METER, EVERY WEEK
     Route: 042
     Dates: start: 20121223, end: 20121223
  10. FLUOROURACIL. [Suspect]
     Active Substance: FLUOROURACIL
     Indication: SQUAMOUS CELL CARCINOMA OF HEAD AND NECK
     Dosage: 1000 MILLIGRAM/SQ. METER, EVERY 3 WEEK
     Route: 042
     Dates: start: 20121217, end: 20130107

REACTIONS (5)
  - Product use in unapproved indication [Recovered/Resolved]
  - Syncope [Recovered/Resolved]
  - Off label use [Recovered/Resolved]
  - Hypotension [Recovered/Resolved]
  - Diarrhoea [Recovered/Resolved]

NARRATIVE: CASE EVENT DATE: 20121220
